FAERS Safety Report 13260715 (Version 1)
Quarter: 2017Q1

REPORT INFORMATION
  Report Type: Spontaneous
  Country: IT (occurrence: IT)
  Receive Date: 20170222
  Receipt Date: 20170222
  Transmission Date: 20170428
  Serious: Yes (Other)
  Sender: FDA-Public Use
  Company Number: IT-PFIZER INC-2017076077

PATIENT
  Age: 51 Year
  Sex: Female
  Weight: 62 kg

DRUGS (3)
  1. AVASTIN [Concomitant]
     Active Substance: BEVACIZUMAB
     Dosage: 900 MG, CYCLIC
     Route: 042
     Dates: start: 20160229, end: 20160701
  2. GEMCITABINE HYDROCHLORIDE. [Suspect]
     Active Substance: GEMCITABINE HYDROCHLORIDE
     Indication: OVARIAN CANCER METASTATIC
     Dosage: 1600 MG, CYCLIC
     Route: 042
     Dates: start: 20160229
  3. CISPLATIN. [Concomitant]
     Active Substance: CISPLATIN
     Dosage: 80 MG, CYCLIC
     Route: 042
     Dates: start: 20160229, end: 20160701

REACTIONS (1)
  - Infusion related reaction [Unknown]

NARRATIVE: CASE EVENT DATE: 20160411
